FAERS Safety Report 8380938-3 (Version None)
Quarter: 2012Q2

REPORT INFORMATION
  Report Type: 
  Country: None (occurrence: None)
  Receive Date: 20120523
  Receipt Date: 20120516
  Transmission Date: 20120825
  Serious: Yes (Hospitalization)
  Sender: FDA-Public Use
  Company Number: PHHO2012IT007675

PATIENT
  Sex: Male
  Weight: 72 kg

DRUGS (9)
  1. TASIGNA [Suspect]
     Dosage: 600 MG, DAILY
     Route: 048
     Dates: start: 20120328
  2. RANIDIL [Concomitant]
     Indication: OESOPHAGITIS
     Dosage: 300 MG, BID
     Route: 048
     Dates: start: 20101221, end: 20120308
  3. LASIX [Concomitant]
     Indication: ABDOMINAL PAIN UPPER
     Dosage: 25 MG, UNK
     Route: 048
     Dates: start: 20120216, end: 20120308
  4. METFORMIN HCL [Concomitant]
     Indication: DIABETES MELLITUS
     Dosage: ALTERNATE DAY
     Dates: start: 20101118
  5. EPREX [Concomitant]
     Indication: ANAEMIA
     Dosage: 40000 IU, QW
     Route: 058
     Dates: start: 20111117
  6. TASIGNA [Suspect]
     Indication: CHRONIC MYELOID LEUKAEMIA
     Dosage: 600 MG, DAILY
     Route: 048
     Dates: start: 20101122, end: 20120308
  7. DILTIAZEM [Concomitant]
     Indication: PROPHYLAXIS
     Dosage: 60 MG, TID
     Route: 048
     Dates: start: 20111003, end: 20120308
  8. CYMBALTA [Concomitant]
     Indication: DEPRESSION
     Dosage: 30 MG, BID
     Route: 048
     Dates: start: 20111117
  9. ASPIRIN [Concomitant]
     Indication: PROPHYLAXIS
     Dosage: 100 MG, QD
     Route: 048
     Dates: start: 20111003, end: 20120308

REACTIONS (1)
  - ISCHAEMIC CARDIOMYOPATHY [None]
